FAERS Safety Report 6636418-6 (Version None)
Quarter: 2010Q1

REPORT INFORMATION
  Report Type: 
  Country: None (occurrence: None)
  Receive Date: 20100310
  Receipt Date: 20100227
  Transmission Date: 20100710
  Serious: Yes (Death)
  Sender: FDA-Public Use
  Company Number: WAES 1001USA00402

PATIENT
  Age: 68 Year
  Sex: Male

DRUGS (6)
  1. TAB SITAGLIPTIN PHOSPHATE [Suspect]
     Indication: TYPE 2 DIABETES MELLITUS
     Dosage: 50 MG/DAILY PO
     Route: 048
     Dates: start: 20091226
  2. TAB SITAGLIPTIN PHOSPHATE [Suspect]
     Indication: TYPE 2 DIABETES MELLITUS
     Dosage: 50 MG/DAILY PO
     Route: 048
     Dates: start: 20090912, end: 20091225
  3. HALCIOM [Concomitant]
  4. LANTUS [Concomitant]
  5. PEPCID [Concomitant]
  6. RELIFEN [Concomitant]

REACTIONS (4)
  - HYPOGLYCAEMIA [None]
  - MYOCARDIAL INFARCTION [None]
  - TREMOR [None]
  - VISION BLURRED [None]
